FAERS Safety Report 6102584-4 (Version None)
Quarter: 2009Q1

REPORT INFORMATION
  Report Type: 
  Country: None (occurrence: None)
  Receive Date: 20090304
  Receipt Date: 20080909
  Transmission Date: 20090719
  Serious: No
  Sender: FDA-Public Use
  Company Number: A0746577A

PATIENT
  Age: 68 Year
  Sex: Female

DRUGS (7)
  1. REQUIP [Suspect]
     Indication: PARKINSON'S DISEASE
     Dosage: 4MG THREE TIMES PER DAY
     Route: 048
     Dates: start: 20070901
  2. DIAZIDE [Concomitant]
  3. FISH OIL [Concomitant]
  4. CENTRUM [Concomitant]
  5. LIPITOR [Concomitant]
  6. COZAAR [Concomitant]
  7. FOLIC ACID [Concomitant]

REACTIONS (4)
  - DIZZINESS [None]
  - DRY MOUTH [None]
  - DYSGEUSIA [None]
  - NAUSEA [None]
